FAERS Safety Report 10531753 (Version 1)
Quarter: 2014Q4

REPORT INFORMATION
  Report Type: Spontaneous
  Country: US (occurrence: US)
  Receive Date: 20141021
  Receipt Date: 20141021
  Transmission Date: 20150529
  Serious: Yes (Death)
  Sender: FDA-Public Use
  Company Number: US-CELGENE-USA-2014101238

PATIENT
  Age: 81 Year
  Sex: Female
  Weight: 45.4 kg

DRUGS (1)
  1. REVLIMID [Suspect]
     Active Substance: LENALIDOMIDE
     Indication: PLASMA CELL MYELOMA
     Dosage: 25 MILLIGRAM
     Route: 048
     Dates: start: 20140203, end: 20140909

REACTIONS (2)
  - Renal failure [Fatal]
  - Chikungunya virus infection [Fatal]

NARRATIVE: CASE EVENT DATE: 20140909
